FAERS Safety Report 25255897 (Version 1)
Quarter: 2025Q2

REPORT INFORMATION
  Report Type: Spontaneous
  Country: RO (occurrence: RO)
  Receive Date: 20250430
  Receipt Date: 20250430
  Transmission Date: 20250717
  Serious: Yes (Other)
  Sender: PFIZER
  Company Number: RO-PFIZER INC-PV202500049740

PATIENT
  Age: 74 Year
  Sex: Female

DRUGS (2)
  1. LORLATINIB [Suspect]
     Active Substance: LORLATINIB
     Indication: Lung adenocarcinoma stage IV
     Dosage: 100 MG, DAILY
     Route: 048
     Dates: start: 20241118
  2. LORLATINIB [Suspect]
     Active Substance: LORLATINIB
     Indication: Palliative care

REACTIONS (3)
  - Stag horn calculus [Unknown]
  - Pleural effusion [Unknown]
  - Infection [Unknown]
